FAERS Safety Report 6020918-6 (Version None)
Quarter: 2008Q4

REPORT INFORMATION
  Report Type: 
  Country: None (occurrence: None)
  Receive Date: 20081229
  Receipt Date: 20081217
  Transmission Date: 20090506
  Serious: Yes (Hospitalization)
  Sender: FDA-Public Use
  Company Number: US-BAYER-200841168NA

PATIENT
  Age: 42 Year
  Sex: Female
  Weight: 134 kg

DRUGS (20)
  1. CIPRO [Suspect]
     Indication: URINARY TRACT INFECTION
     Dosage: TOTAL DAILY DOSE: 500 MG  UNIT DOSE: 500 MG
     Route: 048
     Dates: start: 20081119, end: 20081126
  2. SUNITINIB [Suspect]
     Indication: BREAST CANCER
     Route: 048
     Dates: start: 20080701
  3. PACLITAXEL [Suspect]
     Indication: BREAST CANCER
     Dates: start: 20080701
  4. TOPAMAX [Concomitant]
     Dates: start: 20050101
  5. PROMETHAZINE HCL [Concomitant]
     Dates: start: 20040101
  6. ZOMIG [Concomitant]
     Dates: start: 20000101
  7. EMLA [Concomitant]
     Dates: start: 20080701
  8. XANAX [Concomitant]
     Dates: start: 20080708
  9. STOMATOLOGICALS [Concomitant]
     Dates: start: 20080708
  10. ZOFRAN [Concomitant]
     Dates: start: 20080729
  11. PROTONIX [Concomitant]
     Dates: start: 20080708
  12. LOMOTIL [Concomitant]
     Dates: start: 20080811
  13. MULTI-VITAMINS [Concomitant]
     Dates: start: 20080822
  14. REQUIP [Concomitant]
     Dates: start: 20080923
  15. BACLOFEN [Concomitant]
     Dates: start: 20080923
  16. FIBERCON [Concomitant]
     Dates: start: 20081016
  17. AMBIEN [Concomitant]
     Dates: start: 20081022
  18. DONNATAL [Concomitant]
     Dates: start: 20081104
  19. FLONASE [Concomitant]
     Dates: start: 20081119
  20. MICRO-K [Concomitant]
     Dates: start: 20081119

REACTIONS (3)
  - DIARRHOEA [None]
  - NAUSEA [None]
  - VOMITING [None]
